FAERS Safety Report 5632307-4 (Version None)
Quarter: 2008Q1

REPORT INFORMATION
  Report Type: 
  Country: None (occurrence: None)
  Receive Date: 20080131
  Receipt Date: 20071113
  Transmission Date: 20080703
  Serious: No
  Sender: FDA-Public Use
  Company Number: 163-21880-07100510

PATIENT
  Age: 69 Year
  Sex: Female

DRUGS (11)
  1. REVLIMID [Suspect]
     Indication: MULTIPLE MYELOMA
     Dosage: 25 MG, 1 IN 1 D, ORAL
     Route: 048
     Dates: start: 20070907
  2. COUMADIN [Concomitant]
  3. DEXAMETHASONE TAB [Concomitant]
  4. CELEBREX [Concomitant]
  5. NIFEDICAL (NIFEDIPINE) [Concomitant]
  6. TRIAMTERENE AND HYDROCHLOROTHIAZIDE [Concomitant]
  7. LEVOTHYROXINE SODIUM [Concomitant]
  8. OXYCODONE HCL [Concomitant]
  9. CALCIUM (CALCIUM) [Concomitant]
  10. FLAX SEED [Concomitant]
  11. QUININE (QUININE) [Concomitant]

REACTIONS (1)
  - MUSCLE SPASMS [None]
